FAERS Safety Report 9774628 (Version 4)
Quarter: 2014Q2

REPORT INFORMATION
  Report Type: Report from Study
  Country: JP (occurrence: JP)
  Receive Date: 20131220
  Receipt Date: 20140401
  Transmission Date: 20141212
  Serious: Yes (Other)
  Sender: FDA-Public Use
  Company Number: JP-NAPPMUNDI-GBR-2013-0016615

PATIENT
  Age: 71 Year
  Sex: Male

DRUGS (7)
  1. OXYCODONE HYDROCHLORIDE [Suspect]
     Indication: CANCER PAIN
     Dosage: 0.8 MG/HR, DAILY
     Route: 042
     Dates: start: 20131029, end: 20131101
  2. OXYCODONE HYDROCHLORIDE [Suspect]
     Dosage: 0.7 MG/HR, DAILY
     Route: 042
     Dates: start: 20131026, end: 20131028
  3. OXYCODONE HYDROCHLORIDE [Suspect]
     Dosage: 0.8 MG/HR, DAILY
     Route: 042
     Dates: start: 20131025, end: 20131025
  4. OXYCODONE HYDROCHLORIDE [Suspect]
     Dosage: 1 MG/HR, DAILY
     Route: 042
     Dates: start: 20131024, end: 20131024
  5. OXYCODONE HYDROCHLORIDE [Suspect]
     Dosage: 1.25 MG/HR, DAILY
     Route: 042
     Dates: start: 20131023, end: 20131023
  6. OXYCODONE HYDROCHLORIDE [Suspect]
     Dosage: 1.26 MG/HR, DAILY
     Route: 042
     Dates: start: 20131022, end: 20131022
  7. BLOOD TRANSFUSION, AUXILIARY PRODUCTS [Concomitant]

REACTIONS (1)
  - Delirium [Recovered/Resolved]
